FAERS Safety Report 20007922 (Version 1)
Quarter: 2021Q4

REPORT INFORMATION
  Report Type: Spontaneous
  Country: CN (occurrence: CN)
  Receive Date: 20211028
  Receipt Date: 20211028
  Transmission Date: 20220303
  Serious: Yes (Other)
  Sender: FDA-Public Use
  Company Number: CN-PFIZER INC-202101409712

PATIENT
  Age: 75 Year
  Sex: Female
  Weight: 55 kg

DRUGS (3)
  1. DIFLUCAN [Suspect]
     Active Substance: FLUCONAZOLE
     Indication: Urinary tract infection
     Dosage: 50 ML, 1X/DAY
     Route: 041
     Dates: start: 20211006, end: 20211010
  2. CEFTAZIDIME [Suspect]
     Active Substance: CEFTAZIDIME
     Indication: Urinary tract infection
     Dosage: 1 G, 2X/DAY
     Route: 041
     Dates: start: 20211002, end: 20211010
  3. SODIUM CHLORIDE [Concomitant]
     Active Substance: SODIUM CHLORIDE
     Indication: Vehicle solution use
     Dosage: 100 ML, 2X/DAY
     Route: 041
     Dates: start: 20211002, end: 20211010

REACTIONS (5)
  - Hallucination [Recovered/Resolved]
  - Mental disorder [Recovering/Resolving]
  - Disorganised speech [Recovered/Resolved]
  - Psychomotor hyperactivity [Recovered/Resolved]
  - Dysphoria [Recovered/Resolved]

NARRATIVE: CASE EVENT DATE: 20211010
